FAERS Safety Report 6359567-9 (Version None)
Quarter: 2009Q3

REPORT INFORMATION
  Report Type: 
  Country: None (occurrence: None)
  Receive Date: 20090917
  Receipt Date: 20090914
  Transmission Date: 20100115
  Serious: Yes (Hospitalization)
  Sender: FDA-Public Use
  Company Number: US-GILEAD-2009-0022302

PATIENT
  Sex: Female

DRUGS (13)
  1. LETAIRIS [Suspect]
     Indication: PULMONARY ARTERIAL HYPERTENSION
     Route: 048
     Dates: start: 20090401, end: 20090512
  2. LETAIRIS [Suspect]
     Route: 048
  3. COUMADIN [Concomitant]
  4. LASIX [Concomitant]
  5. COZAAR [Concomitant]
  6. METOPROLOL TARTRATE [Concomitant]
  7. ISOSORBIDE MONONITRATE [Concomitant]
  8. LIPITOR [Concomitant]
  9. ZETIA [Concomitant]
  10. FERROUS SULFATE TAB [Concomitant]
  11. TEGRETOL [Concomitant]
  12. VITAMIN D [Concomitant]
  13. HUMALOG [Concomitant]

REACTIONS (5)
  - ACUTE PRERENAL FAILURE [None]
  - ASCITES [None]
  - CARDIAC FAILURE [None]
  - OEDEMA [None]
  - WEIGHT INCREASED [None]
